FAERS Safety Report 7439732-X (Version None)
Quarter: 2011Q2

REPORT INFORMATION
  Report Type: 
  Country: None (occurrence: None)
  Receive Date: 20110427
  Receipt Date: 20110418
  Transmission Date: 20111010
  Serious: Yes (Hospitalization)
  Sender: FDA-Public Use
  Company Number: PHHO2011DE06438

PATIENT
  Sex: Female
  Weight: 84 kg

DRUGS (12)
  1. FTY 720 [Suspect]
     Indication: MULTIPLE SCLEROSIS
     Dosage: 0.5 MG, QD
     Route: 048
     Dates: start: 20101124
  2. LITHIUM CARBONATE [Concomitant]
  3. MOVIPREP [Concomitant]
     Indication: CONSTIPATION
  4. ZOPICLON [Concomitant]
     Indication: SLEEP DISORDER
  5. LORAZEPAM [Concomitant]
     Indication: SLEEP DISORDER
  6. QUILONUM [Suspect]
     Indication: BIPOLAR DISORDER
  7. ANTIDEPRESSANTS [Concomitant]
  8. CIPRAMIL [Concomitant]
     Indication: BIPOLAR DISORDER
  9. METOCLOPRAMIDE [Concomitant]
  10. LEVOTHYROXINE SODIUM [Concomitant]
     Indication: HYPOTHYROIDISM
  11. IBUPROFEN [Concomitant]
  12. BETAHISTINE [Concomitant]
     Indication: VERTIGO

REACTIONS (1)
  - EPILEPSY [None]
